FAERS Safety Report 16624642 (Version 1)
Quarter: 2019Q3

REPORT INFORMATION
  Report Type: Spontaneous
  Country: US (occurrence: US)
  Receive Date: 20190723
  Receipt Date: 20190723
  Transmission Date: 20191004
  Serious: Yes (Hospitalization)
  Sender: FDA-Public Use
  Company Number: None

PATIENT
  Age: 38 Year
  Sex: Female

DRUGS (20)
  1. HUMALOG [Concomitant]
     Active Substance: INSULIN LISPRO
  2. CAYSTON [Suspect]
     Active Substance: AZTREONAM
     Indication: CYSTIC FIBROSIS
     Route: 055
     Dates: start: 20150220
  3. ADVAIR HFA [Concomitant]
     Active Substance: FLUTICASONE PROPIONATE\SALMETEROL XINAFOATE
  4. NOXAFIL [Concomitant]
     Active Substance: POSACONAZOLE
  5. XHANCE [Concomitant]
     Active Substance: FLUTICASONE PROPIONATE
  6. PULMOZYME [Suspect]
     Active Substance: DORNASE ALFA
     Indication: CYSTIC FIBROSIS
     Route: 048
     Dates: start: 20171219
  7. DEKAS PLUS [Concomitant]
  8. FLOVENT [Concomitant]
     Active Substance: FLUTICASONE PROPIONATE
  9. AZITHROMYCIN ANHYDROUS. [Concomitant]
     Active Substance: AZITHROMYCIN ANHYDROUS
  10. SODIUM CHLOR [Concomitant]
     Active Substance: SODIUM CHLORIDE
  11. ALBUTEROL. [Concomitant]
     Active Substance: ALBUTEROL
  12. ALLEGRA [Concomitant]
     Active Substance: FEXOFENADINE HYDROCHLORIDE
  13. NOVOLOG [Concomitant]
     Active Substance: INSULIN ASPART
  14. ONETOUCH [Concomitant]
  15. ZENPEP [Concomitant]
     Active Substance: PANCRELIPASE AMYLASE\PANCRELIPASE LIPASE\PANCRELIPASE PROTEASE
  16. FLONASE [Concomitant]
     Active Substance: FLUTICASONE PROPIONATE
  17. FOLIC ACID. [Concomitant]
     Active Substance: FOLIC ACID
  18. TOBRAMYCIN. [Concomitant]
     Active Substance: TOBRAMYCIN
  19. LANTUS [Concomitant]
     Active Substance: INSULIN GLARGINE
  20. MONTELUKAST [Concomitant]
     Active Substance: MONTELUKAST SODIUM

REACTIONS (3)
  - Hypersensitivity [None]
  - Infective pulmonary exacerbation of cystic fibrosis [None]
  - Pyrexia [None]

NARRATIVE: CASE EVENT DATE: 20190612
